FAERS Safety Report 8604875-1 (Version None)
Quarter: 2012Q3

REPORT INFORMATION
  Report Type: 
  Country: None (occurrence: None)
  Receive Date: 20120820
  Receipt Date: 20120815
  Transmission Date: 20120928
  Serious: Yes (Death, Other)
  Sender: FDA-Public Use
  Company Number: US-ASTELLAS-2012US006907

PATIENT
  Sex: Male

DRUGS (1)
  1. TARCEVA [Suspect]
     Indication: LUNG CANCER METASTATIC
     Dosage: 150 MG, UID/QD
     Route: 048

REACTIONS (8)
  - DEATH [None]
  - SEPSIS [None]
  - MALNUTRITION [None]
  - PNEUMONIA [None]
  - HEPATIC FUNCTION ABNORMAL [None]
  - PERICARDIAL EFFUSION [None]
  - ASTHENIA [None]
  - NEOPLASM MALIGNANT [None]
